FAERS Safety Report 18122365 (Version 11)
Quarter: 2020Q4

REPORT INFORMATION
  Report Type: Spontaneous
  Country: US (occurrence: US)
  Receive Date: 20200807
  Receipt Date: 20201215
  Transmission Date: 20210113
  Serious: Yes (Other)
  Sender: FDA-Public Use
  Company Number: US-SA-2020SA204159

PATIENT

DRUGS (1)
  1. LANTUS SOLOSTAR [Suspect]
     Active Substance: INSULIN GLARGINE
     Dosage: BASES HER UNITS ON A SLIDING SCALE FROM 16-20 UNITS
     Route: 065

REACTIONS (8)
  - Feeling drunk [Unknown]
  - Injection site pain [Unknown]
  - Device issue [Unknown]
  - Product administered at inappropriate site [Unknown]
  - Macular degeneration [Unknown]
  - Blindness [Unknown]
  - Blood glucose decreased [Unknown]
  - Product storage error [Unknown]
